FAERS Safety Report 9716972 (Version 1)
Quarter: 2013Q4

REPORT INFORMATION
  Report Type: Spontaneous
  Country: US (occurrence: US)
  Receive Date: 20131127
  Receipt Date: 20131127
  Transmission Date: 20140711
  Serious: No
  Sender: FDA-Public Use
  Company Number: US-GILEAD-2009-0020220

PATIENT
  Sex: Female
  Weight: 103.42 kg

DRUGS (10)
  1. LETAIRIS [Suspect]
     Indication: PULMONARY ARTERIAL HYPERTENSION
     Route: 048
     Dates: start: 20081108
  2. LASIX [Concomitant]
  3. HYDROCHLOROTHIAZIDE [Concomitant]
  4. ZOCOR [Concomitant]
  5. ZETIA [Concomitant]
  6. KLONOPIN [Concomitant]
  7. ZANTAC [Concomitant]
  8. MULTIVITAMIN [Concomitant]
  9. POTASSIUM CHLORIDE [Concomitant]
  10. CALCIUM/VITAMIN D [Concomitant]

REACTIONS (1)
  - Dyspnoea [Unknown]
